FAERS Safety Report 6744321-6 (Version None)
Quarter: 2010Q2

REPORT INFORMATION
  Report Type: 
  Country: None (occurrence: None)
  Receive Date: 20100527
  Receipt Date: 20100525
  Transmission Date: 20101027
  Serious: Yes (Hospitalization)
  Sender: FDA-Public Use
  Company Number: US-MERCK-1005USA00673

PATIENT

DRUGS (2)
  1. JANUMET [Suspect]
     Route: 048
  2. PRECOSE [Concomitant]
     Route: 065

REACTIONS (1)
  - PSEUDOMEMBRANOUS COLITIS [None]
